FAERS Safety Report 5402837-9 (Version None)
Quarter: 2007Q3

REPORT INFORMATION
  Report Type: 
  Country: None (occurrence: None)
  Receive Date: 20070801
  Receipt Date: 20070726
  Transmission Date: 20080115
  Serious: Yes (Hospitalization)
  Sender: FDA-Public Use
  Company Number: DE-BRISTOL-MYERS SQUIBB COMPANY-13862966

PATIENT
  Age: 70 Year
  Sex: Male

DRUGS (4)
  1. ERBITUX [Suspect]
     Indication: COLON CANCER
     Dates: start: 20050414, end: 20050805
  2. IRINOTECAN HCL [Suspect]
     Indication: COLON CANCER
     Dates: start: 20050414, end: 20050805
  3. DEXAMETHASONE 0.5MG TAB [Concomitant]
     Dates: start: 20050421
  4. CLEMASTINE FUMARATE [Concomitant]
     Dates: start: 20050421

REACTIONS (3)
  - GENERAL PHYSICAL HEALTH DETERIORATION [None]
  - LEUKOPENIA [None]
  - ORAL FUNGAL INFECTION [None]
